FAERS Safety Report 9959803 (Version 1)
Quarter: 2014Q1

REPORT INFORMATION
  Report Type: Spontaneous
  Country: US (occurrence: None)
  Receive Date: 20140228
  Receipt Date: 20140228
  Transmission Date: 20141002
  Serious: No
  Sender: FDA-Public Use
  Company Number: None

PATIENT
  Age: 35 Year
  Sex: Female
  Weight: 48.8 kg

DRUGS (2)
  1. 5-FLUOROURACIL [Suspect]
  2. OXALIPLATIN [Suspect]

REACTIONS (1)
  - Fatigue [None]
